FAERS Safety Report 12648637 (Version 1)
Quarter: 2016Q3

REPORT INFORMATION
  Report Type: Spontaneous
  Country: ZA (occurrence: ZA)
  Receive Date: 20160812
  Receipt Date: 20160812
  Transmission Date: 20161109
  Serious: Yes (Other)
  Sender: FDA-Public Use
  Company Number: ZA-BAYER-2016-148883

PATIENT
  Age: 21 Year
  Sex: Male

DRUGS (1)
  1. CIPROBAY XR 1000 [Suspect]
     Active Substance: CIPROFLOXACIN
     Dosage: UNK
     Route: 048

REACTIONS (5)
  - Eye swelling [None]
  - Generalised erythema [None]
  - Hypersensitivity [None]
  - Peripheral swelling [None]
  - Lip swelling [None]
